FAERS Safety Report 6271892-9 (Version None)
Quarter: 2009Q3

REPORT INFORMATION
  Report Type: 
  Country: None (occurrence: None)
  Receive Date: 20090717
  Receipt Date: 20090713
  Transmission Date: 20100115
  Serious: Yes (Death)
  Sender: FDA-Public Use
  Company Number: PHEH2009US07299

PATIENT
  Sex: Male
  Weight: 53.696 kg

DRUGS (3)
  1. ZOMETA [Suspect]
     Indication: LUNG CANCER METASTATIC
     Dosage: UNK
     Dates: end: 20090224
  2. ZOMETA [Suspect]
     Indication: METASTASES TO BONE
  3. LORTAB [Concomitant]
     Dosage: 5 Q6 HOURS PRN
     Route: 048

REACTIONS (1)
  - MYOCARDIAL INFARCTION [None]
